FAERS Safety Report 17473413 (Version 1)
Quarter: 2020Q1

REPORT INFORMATION
  Report Type: Report from Study
  Country: BR (occurrence: BR)
  Receive Date: 20200228
  Receipt Date: 20200228
  Transmission Date: 20200409
  Serious: Yes (Other)
  Sender: FDA-Public Use
  Company Number: BR-JNJFOC-20190620957

PATIENT
  Age: 52 Year
  Sex: Female
  Weight: 54 kg

DRUGS (2)
  1. PANTOPRAZOLE [Concomitant]
     Active Substance: PANTOPRAZOLE
  2. STELARA [Suspect]
     Active Substance: USTEKINUMAB
     Indication: CROHN^S DISEASE
     Route: 058
     Dates: start: 20190218

REACTIONS (7)
  - Arthralgia [Recovering/Resolving]
  - Back pain [Recovered/Resolved]
  - Dysentery [Recovered/Resolved]
  - Nausea [Unknown]
  - Pyrexia [Recovered/Resolved]
  - Peripheral swelling [Recovered/Resolved]
  - Pain in extremity [Recovered/Resolved]

NARRATIVE: CASE EVENT DATE: 201906
